FAERS Safety Report 6862305-4 (Version None)
Quarter: 2010Q3

REPORT INFORMATION
  Report Type: 
  Country: None (occurrence: None)
  Receive Date: 20100721
  Receipt Date: 20100708
  Transmission Date: 20110219
  Serious: Yes (Death, Other)
  Sender: FDA-Public Use
  Company Number: ES-AMGEN-US364721

PATIENT
  Age: 74 Year
  Sex: Male

DRUGS (1)
  1. ENBREL [Suspect]
     Indication: PSORIASIS
     Route: 058
     Dates: start: 20090205, end: 20090303

REACTIONS (3)
  - FALL [None]
  - LUNG ADENOCARCINOMA METASTATIC [None]
  - MUSCULOSKELETAL PAIN [None]
